FAERS Safety Report 10359676 (Version 1)
Quarter: 2014Q3

REPORT INFORMATION
  Report Type: Spontaneous
  Country: US (occurrence: US)
  Receive Date: 20140804
  Receipt Date: 20140804
  Transmission Date: 20150326
  Serious: No
  Sender: FDA-Public Use
  Company Number: US-PFIZER INC-2014213266

PATIENT
  Age: 71 Year
  Sex: Female
  Weight: 50.34 kg

DRUGS (3)
  1. CARDIZEM [Suspect]
     Active Substance: DILTIAZEM HYDROCHLORIDE
     Indication: HYPERTENSION
     Dosage: UNK
  2. LISINOPRIL. [Suspect]
     Active Substance: LISINOPRIL
     Indication: HYPERTENSION
     Dosage: UNK
     Dates: end: 201407
  3. ADVIL [Suspect]
     Active Substance: IBUPROFEN
     Dosage: SIX TO SEVEN LIQUIGELS OF UNKNOWN DOSE IN A DAY
     Route: 048
     Dates: end: 201407

REACTIONS (5)
  - Hypertension [Unknown]
  - Overdose [Unknown]
  - Hypotension [Recovering/Resolving]
  - Fatigue [Recovering/Resolving]
  - Blood pressure decreased [Recovering/Resolving]

NARRATIVE: CASE EVENT DATE: 201407
